FAERS Safety Report 26113101 (Version 1)
Quarter: 2025Q4

REPORT INFORMATION
  Report Type: Spontaneous
  Country: US (occurrence: US)
  Receive Date: 20251202
  Receipt Date: 20251202
  Transmission Date: 20260118
  Serious: No
  Sender: BAYER HEALTHCARE PHARMACEUTICALS INC.
  Company Number: US-BAYER-2025A158785

PATIENT
  Sex: Male

DRUGS (1)
  1. NUBEQA [Suspect]
     Active Substance: DAROLUTAMIDE
     Dosage: UNK
     Dates: start: 202509

REACTIONS (4)
  - Diarrhoea [None]
  - Nausea [None]
  - Feeding disorder [None]
  - Food poisoning [None]

NARRATIVE: CASE EVENT DATE: 20250101
